FAERS Safety Report 14332167 (Version 1)
Quarter: 2017Q4

REPORT INFORMATION
  Report Type: Spontaneous
  Country: US (occurrence: US)
  Receive Date: 20171227
  Receipt Date: 20171227
  Transmission Date: 20180321
  Serious: Yes (Death, Hospitalization)
  Sender: FDA-Public Use
  Company Number: None

PATIENT
  Age: 1 Month
  Sex: Female
  Weight: 4.1 kg

DRUGS (2)
  1. CARBOPLATIN. [Suspect]
     Active Substance: CARBOPLATIN
     Dates: end: 20171219
  2. ETOPOSIDE (VP-16) [Suspect]
     Active Substance: ETOPOSIDE
     Dates: end: 20171221

REACTIONS (7)
  - Tumour lysis syndrome [None]
  - Activated partial thromboplastin time prolonged [None]
  - Encephalopathy [None]
  - Abdominal compartment syndrome [None]
  - Prothrombin time prolonged [None]
  - Mental status changes [None]
  - Anuria [None]

NARRATIVE: CASE EVENT DATE: 20171224
